APPROVED DRUG PRODUCT: CYCLOPHOSPHAMIDE
Active Ingredient: CYCLOPHOSPHAMIDE
Strength: 25MG
Dosage Form/Route: CAPSULE;ORAL
Application: A211608 | Product #001 | TE Code: AB
Applicant: CIPLA LTD
Approved: Jan 18, 2019 | RLD: No | RS: No | Type: RX